FAERS Safety Report 7050654-9 (Version None)
Quarter: 2010Q4

REPORT INFORMATION
  Report Type: 
  Country: None (occurrence: None)
  Receive Date: 20101018
  Receipt Date: 20090923
  Transmission Date: 20110411
  Serious: Yes (Other)
  Sender: FDA-Public Use
  Company Number: BR-GENENTECH-308148

PATIENT

DRUGS (4)
  1. MABTHERA [Suspect]
     Indication: LYMPHOMA
     Dosage: UNK
     Route: 065
  2. IFOSFAMIDE [Concomitant]
     Indication: LYMPHOMA
     Dosage: UNK
  3. CARBOPLATIN [Concomitant]
     Indication: LYMPHOMA
     Dosage: UNK
  4. ETOPOSIDE [Concomitant]
     Indication: LYMPHOMA
     Dosage: UNK

REACTIONS (1)
  - LYMPHOMA [None]
